FAERS Safety Report 14716468 (Version 3)
Quarter: 2018Q3

REPORT INFORMATION
  Report Type: Spontaneous
  Country: DE (occurrence: DE)
  Receive Date: 20180404
  Receipt Date: 20180918
  Transmission Date: 20181010
  Serious: Yes (Other)
  Sender: FDA-Public Use
  Company Number: DE-MYLANLABS-2018M1021400

PATIENT
  Age: 25 Year
  Sex: Male

DRUGS (2)
  1. RITUXIMAB. [Suspect]
     Active Substance: RITUXIMAB
     Indication: ROSAI-DORFMAN SYNDROME
     Dosage: UNK, SECOND LINE THERAPY
     Route: 065
  2. IMATINIB [Suspect]
     Active Substance: IMATINIB
     Indication: ROSAI-DORFMAN SYNDROME
     Dosage: UNK
     Route: 065

REACTIONS (4)
  - Product use in unapproved indication [Unknown]
  - Disease progression [Recovered/Resolved]
  - Condition aggravated [Unknown]
  - Lymphadenopathy [Recovering/Resolving]
